FAERS Safety Report 18690911 (Version 1)
Quarter: 2021Q1

REPORT INFORMATION
  Report Type: Other
  Country: JP (occurrence: JP)
  Receive Date: 20210101
  Receipt Date: 20210101
  Transmission Date: 20210419
  Serious: Yes (Other)
  Sender: FDA-Public Use
  Company Number: JP-ROCHE-2740801

PATIENT

DRUGS (1)
  1. RITUXIMAB. [Suspect]
     Active Substance: RITUXIMAB
     Indication: PROPHYLAXIS AGAINST TRANSPLANT REJECTION
     Dosage: 200 MG/BODY
     Route: 041

REACTIONS (8)
  - Herpes zoster [Unknown]
  - Influenza [Unknown]
  - Intentional product use issue [Unknown]
  - BK virus infection [Unknown]
  - Off label use [Unknown]
  - Herpes simplex [Unknown]
  - Adenovirus infection [Unknown]
  - Cytomegalovirus infection [Unknown]
